FAERS Safety Report 5339330-8 (Version None)
Quarter: 2007Q2

REPORT INFORMATION
  Report Type: 
  Country: None (occurrence: None)
  Receive Date: 20070525
  Receipt Date: 20070510
  Transmission Date: 20071010
  Serious: Yes (Other)
  Sender: FDA-Public Use
  Company Number: 2007RR-07544

PATIENT
  Age: 85 Year
  Sex: Female

DRUGS (8)
  1. SIMVASTATIN [Suspect]
     Indication: BLOOD CHOLESTEROL INCREASED
     Dosage: 40 MG, QD, ORAL
     Route: 048
  2. POMEGRANATE (POMEGRANATE) [Suspect]
     Dosage: ORAL
     Route: 048
     Dates: start: 20070419, end: 20070422
  3. ISOSORBIDE MONONITRATE (ISOSORBIDE) [Concomitant]
  4. LOSARTAN POTASSIUM (LOSARTAN) [Concomitant]
  5. METFORMIN HCL [Concomitant]
  6. OVESTIN [Concomitant]
  7. RANITIDINE [Concomitant]
  8. SOLIFENACIN [Concomitant]

REACTIONS (2)
  - FOOD INTERACTION [None]
  - PAIN IN EXTREMITY [None]
